FAERS Safety Report 4988696-7 (Version None)
Quarter: 2006Q2

REPORT INFORMATION
  Report Type: 
  Country: None (occurrence: None)
  Receive Date: 20060502
  Receipt Date: 20060421
  Transmission Date: 20061013
  Serious: Yes (Hospitalization)
  Sender: FDA-Public Use
  Company Number: US-MERCK-0604USA03800

PATIENT
  Age: 71 Year
  Sex: Female
  Weight: 93 kg

DRUGS (16)
  1. VIOXX [Suspect]
     Indication: ARTHRITIS
     Route: 048
     Dates: start: 20010701, end: 20020801
  2. NORVASC [Concomitant]
     Route: 065
  3. GLUCOPHAGE [Concomitant]
     Route: 065
  4. THEOPHYLLINE [Concomitant]
     Route: 065
  5. DEMADEX [Concomitant]
     Route: 065
  6. K-DUR 10 [Concomitant]
     Route: 065
  7. PLAVIX [Concomitant]
     Route: 065
  8. DIOVAN [Concomitant]
     Route: 065
  9. GLIPIZIDE [Concomitant]
     Route: 065
  10. ZOCOR [Concomitant]
     Route: 048
  11. ELAVIL [Concomitant]
     Route: 048
  12. INSULIN [Concomitant]
     Route: 065
  13. NITROGLYCERIN [Concomitant]
     Route: 065
  14. ALLOPURINOL [Concomitant]
     Route: 065
  15. AZMACORT [Concomitant]
     Route: 065
  16. HUMULIN [Concomitant]
     Route: 065

REACTIONS (1)
  - MYOCARDIAL INFARCTION [None]
